FAERS Safety Report 7466772-7 (Version None)
Quarter: 2011Q1

REPORT INFORMATION
  Report Type: 
  Country: None (occurrence: None)
  Receive Date: 20110302
  Receipt Date: 20101223
  Transmission Date: 20110831
  Serious: Yes (Other)
  Sender: FDA-Public Use
  Company Number: 163-21880-10123198

PATIENT
  Age: 56 Year
  Sex: Male
  Weight: 79.3795 kg

DRUGS (20)
  1. FERROUS SULFATE TAB [Concomitant]
  2. SPIRIVA [Concomitant]
  3. VALIUM [Concomitant]
  4. MEGACE [Concomitant]
  5. MORPHINE SULFATE INJ [Concomitant]
  6. LACTULOSE [Concomitant]
  7. LIPITOR [Concomitant]
  8. DOCUSATE SODIUM (DOCUSATE SODIUM) [Concomitant]
  9. LIDODERM [Concomitant]
  10. DECADRON [Concomitant]
  11. OMEPRAZOLE [Concomitant]
  12. MULTIVITAMIN [Concomitant]
  13. FINASTERIDE [Concomitant]
  14. FLOMAX [Concomitant]
  15. REVLIMID [Suspect]
     Indication: MULTIPLE MYELOMA
     Dosage: 25 MG, DAILY X 14 DAYS, PO
     Route: 048
     Dates: start: 20101001
  16. MS CONTIN [Concomitant]
  17. SENNA (SENNA) [Concomitant]
  18. DULCOLAX [Concomitant]
  19. ALLOPURINOL [Concomitant]
  20. ALOE VESTA (MICONAZOLE NITRATE) [Concomitant]

REACTIONS (3)
  - GASTROINTESTINAL DISORDER [None]
  - SEPSIS [None]
  - LUNG INFECTION [None]
